FAERS Safety Report 6742213-X (Version None)
Quarter: 2010Q2

REPORT INFORMATION
  Report Type: 
  Country: None (occurrence: None)
  Receive Date: 20100526
  Receipt Date: 20100518
  Transmission Date: 20101027
  Serious: Yes (Other)
  Sender: FDA-Public Use
  Company Number: GXKR2010IT05570

PATIENT
  Age: 14 Year
  Sex: Male

DRUGS (3)
  1. CYCLOSPORINE [Suspect]
     Indication: GRAFT VERSUS HOST DISEASE
     Dosage: 10 MG/KG, QD
     Route: 048
  2. METHOTREXATE [Concomitant]
     Indication: GRAFT VERSUS HOST DISEASE
     Dosage: 10 MG/M2, ON DAY 1, 3 AND 6
     Route: 042
  3. METHYLPREDNISOLONE [Concomitant]
     Indication: GRAFT VERSUS HOST DISEASE
     Dosage: 0.5 MG/KG, FROM DAY -1 TO DAY 25
     Route: 065

REACTIONS (4)
  - GRAND MAL CONVULSION [None]
  - HEADACHE [None]
  - NEUROTOXICITY [None]
  - VOMITING [None]
